FAERS Safety Report 13920603 (Version 1)
Quarter: 2017Q3

REPORT INFORMATION
  Report Type: Spontaneous
  Country: US (occurrence: US)
  Receive Date: 20170829
  Receipt Date: 20170829
  Transmission Date: 20171127
  Serious: Yes (Other)
  Sender: FDA-Public Use
  Company Number: None

PATIENT
  Age: 86 Year
  Sex: Male
  Weight: 71.55 kg

DRUGS (1)
  1. SALONPAS PAIN RELIEF [Suspect]
     Active Substance: MENTHOL\METHYL SALICYLATE
     Indication: ARTHRITIS
     Dosage: ?          QUANTITY:20 PATCH(ES);?
     Route: 062
     Dates: start: 20170601, end: 20170827

REACTIONS (4)
  - Hypersensitivity [None]
  - Swollen tongue [None]
  - Dyspnoea [None]
  - Pruritus [None]

NARRATIVE: CASE EVENT DATE: 20170827
